FAERS Safety Report 18423564 (Version 5)
Quarter: 2021Q3

REPORT INFORMATION
  Report Type: Report from Study
  Country: US (occurrence: US)
  Receive Date: 20201023
  Receipt Date: 20210921
  Transmission Date: 20211014
  Serious: Yes (Other)
  Sender: FDA-Public Use
  Company Number: NVSC2020US281067

PATIENT
  Age: 46 Year
  Sex: Female

DRUGS (4)
  1. LISINOPRIL. [Suspect]
     Active Substance: LISINOPRIL
     Indication: PRODUCT USED FOR UNKNOWN INDICATION
     Dosage: UNK
     Route: 065
  2. ENTRESTO [Suspect]
     Active Substance: SACUBITRIL\VALSARTAN
     Dosage: UNK
     Route: 065
  3. ENTRESTO [Suspect]
     Active Substance: SACUBITRIL\VALSARTAN
     Indication: CARDIAC FAILURE CHRONIC
     Dosage: UNK
     Route: 065
  4. CARVEDILOL. [Suspect]
     Active Substance: CARVEDILOL
     Indication: PRODUCT USED FOR UNKNOWN INDICATION
     Route: 065

REACTIONS (15)
  - Blood creatinine increased [Unknown]
  - Post procedural complication [Unknown]
  - Fatigue [Unknown]
  - Ejection fraction decreased [Unknown]
  - Pain [Unknown]
  - Asthenia [Unknown]
  - Bradykinesia [Unknown]
  - Peripheral swelling [Unknown]
  - Gait disturbance [Unknown]
  - Renal impairment [Unknown]
  - Nervousness [Unknown]
  - Dizziness [Unknown]
  - Pulmonary oedema [Unknown]
  - Anxiety [Unknown]
  - Hypotension [Unknown]
